FAERS Safety Report 12949819 (Version 1)
Quarter: 2016Q4

REPORT INFORMATION
  Report Type: Report from Study
  Country: BR (occurrence: BR)
  Receive Date: 20161117
  Receipt Date: 20161117
  Transmission Date: 20170207
  Serious: Yes (Other)
  Sender: FDA-Public Use
  Company Number: PHHY2016BR156421

PATIENT
  Sex: Male
  Weight: 89 kg

DRUGS (1)
  1. SANDOSTATIN LAR DEPOT [Suspect]
     Active Substance: OCTREOTIDE ACETATE
     Indication: ACROMEGALY
     Dosage: 30 MG, QMO
     Route: 030

REACTIONS (6)
  - Weight decreased [Unknown]
  - Anaemia [Unknown]
  - Headache [Unknown]
  - Myelodysplastic syndrome [Unknown]
  - Metabolic disorder [Unknown]
  - Weight fluctuation [Unknown]
